FAERS Safety Report 26124634 (Version 1)
Quarter: 2025Q4

REPORT INFORMATION
  Report Type: Spontaneous
  Country: EU (occurrence: EU)
  Receive Date: 20251205
  Receipt Date: 20251205
  Transmission Date: 20260117
  Serious: Yes (Hospitalization, Other)
  Sender: BRISTOL-MYERS SQUIBB COMPANY
  Company Number: EU-BRISTOL-MYERS SQUIBB COMPANY-2025-162930

PATIENT
  Age: 53 Year
  Sex: Female

DRUGS (2)
  1. IPILIMUMAB [Suspect]
     Active Substance: IPILIMUMAB
     Indication: Malignant melanoma
  2. NIVOLUMAB [Suspect]
     Active Substance: NIVOLUMAB
     Indication: Malignant melanoma

REACTIONS (8)
  - Acute kidney injury [Unknown]
  - Immune-mediated enterocolitis [Recovering/Resolving]
  - Immune-mediated hepatitis [Unknown]
  - Rash maculo-papular [Unknown]
  - Immune-mediated neuropathy [Unknown]
  - Arthralgia [Unknown]
  - Dehydration [Unknown]
  - Metastatic malignant melanoma [Unknown]

NARRATIVE: CASE EVENT DATE: 20241201
